FAERS Safety Report 14940943 (Version 1)
Quarter: 2018Q2

REPORT INFORMATION
  Report Type: Spontaneous
  Country: US (occurrence: US)
  Receive Date: 20180525
  Receipt Date: 20180525
  Transmission Date: 20180711
  Serious: Yes (Other)
  Sender: FDA-Public Use
  Company Number: US-REGENERON PHARMACEUTICALS, INC.-2018-24420

PATIENT

DRUGS (3)
  1. OXYCODONE [Concomitant]
     Active Substance: OXYCODONE
     Indication: PRODUCT USED FOR UNKNOWN INDICATION
  2. EYLEA [Suspect]
     Active Substance: AFLIBERCEPT
     Indication: NEOVASCULAR AGE-RELATED MACULAR DEGENERATION
     Dosage: UNK, RIGHT EYE EVERY 4-6 WEEKS
  3. EYLEA [Suspect]
     Active Substance: AFLIBERCEPT
     Dosage: RIGHT EYE
     Dates: start: 20180515, end: 20180515

REACTIONS (6)
  - Neuropathy peripheral [Not Recovered/Not Resolved]
  - Cytomegalovirus infection [Unknown]
  - Sciatica [Not Recovered/Not Resolved]
  - Fatigue [Unknown]
  - Papilloma viral infection [Unknown]
  - Drug level below therapeutic [Unknown]
